FAERS Safety Report 7284109-3 (Version None)
Quarter: 2011Q1

REPORT INFORMATION
  Report Type: 
  Country: None (occurrence: None)
  Receive Date: 20110209
  Receipt Date: 20110207
  Transmission Date: 20110831
  Serious: Yes (Life-Threatening)
  Sender: FDA-Public Use
  Company Number: IT-PFIZER INC-2010152753

PATIENT
  Age: 63 Year
  Sex: Female

DRUGS (1)
  1. QUINAPRIL HCL [Suspect]
     Indication: HYPERTENSION
     Dosage: UNK
     Dates: start: 20090101

REACTIONS (3)
  - VERTIGO [None]
  - HYPERHIDROSIS [None]
  - ATRIAL FIBRILLATION [None]
